FAERS Safety Report 6387216-2 (Version None)
Quarter: 2009Q4

REPORT INFORMATION
  Report Type: 
  Country: None (occurrence: None)
  Receive Date: 20091002
  Receipt Date: 20090921
  Transmission Date: 20100525
  Serious: Yes (Hospitalization)
  Sender: FDA-Public Use
  Company Number: NO-AMGEN-US344375

PATIENT
  Age: 78 Year
  Sex: Female

DRUGS (11)
  1. ENBREL [Suspect]
     Indication: DRUG USE FOR UNKNOWN INDICATION
     Dates: start: 20090313
  2. FOLIC ACID [Concomitant]
  3. IBUX [Concomitant]
  4. IMOVANE [Concomitant]
     Dosage: 7,5 MG AT NIGHT
  5. ZOLOFT [Concomitant]
  6. BUSPAR [Concomitant]
  7. SOBRIL [Concomitant]
     Dosage: 10 MG, DOSE FREQUENCY UNKNOWN
  8. METHOTREXATE [Concomitant]
  9. FLUOXETINE HCL [Concomitant]
  10. PARACETAMOL [Concomitant]
  11. VITAMIN D [Concomitant]

REACTIONS (3)
  - CHEST PAIN [None]
  - DYSPNOEA [None]
  - MUSCLE SPASMS [None]
